FAERS Safety Report 8585045-2 (Version None)
Quarter: 2012Q3

REPORT INFORMATION
  Report Type: 
  Country: None (occurrence: None)
  Receive Date: 20120810
  Receipt Date: 20120801
  Transmission Date: 20120928
  Serious: Yes (Death, Life-Threatening, Hospitalization)
  Sender: FDA-Public Use
  Company Number: GB-CELGENEUS-167-21880-12070394

PATIENT
  Age: 73 Year
  Sex: Female

DRUGS (3)
  1. DEXAMETHASONE [Suspect]
     Indication: MULTIPLE MYELOMA
     Route: 048
     Dates: start: 20120426, end: 20120722
  2. REVLIMID [Suspect]
     Indication: MULTIPLE MYELOMA
     Dosage: 10 MILLIGRAM
     Route: 048
     Dates: start: 20120426, end: 20120701
  3. CYCLOPHOSPHAMIDE [Suspect]
     Indication: MULTIPLE MYELOMA
     Route: 048
     Dates: start: 20120426, end: 20120726

REACTIONS (2)
  - SEPSIS [None]
  - NEUTROPENIC SEPSIS [None]
